FAERS Safety Report 9707711 (Version 3)
Quarter: 2014Q1

REPORT INFORMATION
  Report Type: Spontaneous
  Country: US (occurrence: US)
  Receive Date: 20131125
  Receipt Date: 20140120
  Transmission Date: 20141002
  Serious: Yes (Other)
  Sender: FDA-Public Use
  Company Number: US-JNJFOC-20131111958

PATIENT
  Age: 58 Year
  Sex: Female
  Weight: 91.17 kg

DRUGS (7)
  1. INVOKANA [Suspect]
     Indication: TYPE 2 DIABETES MELLITUS
     Route: 048
     Dates: start: 20130923, end: 20131114
  2. INVOKANA [Suspect]
     Indication: TYPE 2 DIABETES MELLITUS
     Route: 048
     Dates: start: 2013, end: 2013
  3. LEVEMIR [Concomitant]
     Indication: DIABETES MELLITUS
     Route: 058
  4. LANTUS [Concomitant]
     Indication: DIABETES MELLITUS
     Route: 058
  5. METFORMIN [Concomitant]
     Indication: DIABETES MELLITUS
     Route: 048
  6. DPP4 INHIBITOR [Concomitant]
     Indication: DIABETES MELLITUS
     Route: 048
  7. GLP-1 [Concomitant]
     Indication: DIABETES MELLITUS
     Route: 058

REACTIONS (6)
  - Hallucination [Recovered/Resolved]
  - Blood sodium decreased [Recovered/Resolved]
  - Weight decreased [Recovered/Resolved]
  - Urine output increased [Recovered/Resolved]
  - Polydipsia [Recovered/Resolved]
  - Drug ineffective [Unknown]
